FAERS Safety Report 13747308 (Version 3)
Quarter: 2017Q3

REPORT INFORMATION
  Report Type: Spontaneous
  Country: KR (occurrence: KR)
  Receive Date: 20170712
  Receipt Date: 20170810
  Transmission Date: 20171127
  Serious: Yes (Hospitalization, Other)
  Sender: FDA-Public Use
  Company Number: KR-009507513-1412KOR001379

PATIENT
  Age: 50 Year
  Sex: Male
  Weight: 52.6 kg

DRUGS (29)
  1. PLATOSIN [Concomitant]
     Active Substance: CISPLATIN
     Indication: CHEMOTHERAPY
     Dosage: 92.4 MG, ONCE; STRENGTH: 0.1% 50 ML
     Route: 042
     Dates: start: 20141111, end: 20141111
  2. CHLORPHENIRAMINE MALEATE. [Concomitant]
     Active Substance: CHLORPHENIRAMINE MALEATE
     Indication: PROPHYLAXIS
     Dosage: 4 MG, QD
     Route: 042
     Dates: start: 20141111, end: 20141114
  3. METOCLOPRAMIDE HYDROCHLORIDE. [Concomitant]
     Active Substance: METOCLOPRAMIDE HYDROCHLORIDE
     Indication: PROPHYLAXIS OF NAUSEA AND VOMITING
     Dosage: 10 MG, QD
     Route: 042
     Dates: start: 20141112, end: 20141113
  4. DEXAMETHASONE SODIUM PHOSPHATE. [Concomitant]
     Active Substance: DEXAMETHASONE SODIUM PHOSPHATE
     Indication: PREMEDICATION
     Dosage: 10 MG, ONCE; STRENGTH: 5MG/ML
     Route: 042
     Dates: start: 20141111, end: 20141111
  5. ALOXI [Concomitant]
     Active Substance: PALONOSETRON HYDROCHLORIDE
     Indication: PREMEDICATION
     Dosage: 0.25 MG, ONCE
     Route: 042
     Dates: start: 20141111, end: 20141111
  6. MANNITOL. [Concomitant]
     Active Substance: MANNITOL
     Indication: ACUTE KIDNEY INJURY
  7. ACETAMINOPHEN (+) CODEINE PHOSPHATE (+) IBUPROFEN [Concomitant]
     Dosage: 1 DF, BID (TACOPEN), 400/20/500 MG, BID
     Dates: start: 20141117, end: 20141117
  8. ACETAMINOPHEN (+) CODEINE PHOSPHATE (+) IBUPROFEN [Concomitant]
     Dosage: QD (TACOPEN), 400/20/500 MG, QD
     Route: 048
     Dates: start: 20141119, end: 20141119
  9. EMEND (FOSAPREPITANT DIMEGLUMINE) [Suspect]
     Active Substance: FOSAPREPITANT DIMEGLUMINE
     Indication: PROPHYLAXIS OF NAUSEA AND VOMITING
     Dosage: 150 MG, ONCE
     Route: 042
     Dates: start: 20141111, end: 20141111
  10. SELBEX [Concomitant]
     Active Substance: TEPRENONE
     Indication: GASTRITIS PROPHYLAXIS
     Dosage: 50 MG, TID
     Route: 048
     Dates: start: 20141027, end: 20141109
  11. MANNITOL. [Concomitant]
     Active Substance: MANNITOL
     Indication: PROPHYLAXIS
     Dosage: 250 ML, ONCE; STRENGTH:15% 250 ML
     Route: 042
     Dates: start: 20141111, end: 20141111
  12. CHLORPHENIRAMINE MALEATE. [Concomitant]
     Active Substance: CHLORPHENIRAMINE MALEATE
     Dosage: 4 MG, ONCE
     Route: 042
     Dates: start: 20141117, end: 20141117
  13. ACETAMINOPHEN (+) CODEINE PHOSPHATE (+) IBUPROFEN [Concomitant]
     Indication: PAIN MANAGEMENT
     Dosage: QD (TACOPEN), 400/20/500 MG, QD
     Route: 048
     Dates: start: 20141110, end: 20141110
  14. ACETAMINOPHEN (+) CODEINE PHOSPHATE (+) IBUPROFEN [Concomitant]
     Dosage: TID (TACOPEN), 400/20/500 MG, TID
     Route: 048
     Dates: start: 20141118, end: 20141118
  15. MOTILITONE [Concomitant]
     Active Substance: HERBALS
     Dosage: 30 MG, ONCE
     Route: 048
     Dates: start: 20141125, end: 20141125
  16. FLUOROURACIL. [Concomitant]
     Active Substance: FLUOROURACIL
     Indication: CHEMOTHERAPY
     Dosage: 58 MG, QD; 4DAYS TOTAL DOSE : 232MG; STRENGTH: 250MG/5 ML
     Route: 042
     Dates: start: 20141111, end: 20141114
  17. ULTRACET [Concomitant]
     Active Substance: ACETAMINOPHEN\TRAMADOL HYDROCHLORIDE
     Dosage: 1300/150 MG, BID
     Route: 048
     Dates: start: 20141112, end: 20141117
  18. ULTRACET [Concomitant]
     Active Substance: ACETAMINOPHEN\TRAMADOL HYDROCHLORIDE
     Dosage: 2 TABLET, QD
     Route: 048
     Dates: start: 20141119, end: 20141119
  19. ACETAMINOPHEN (+) CODEINE PHOSPHATE (+) IBUPROFEN [Concomitant]
     Dosage: TID (TACOPEN), 400/20/500 MG, TID
     Route: 048
     Dates: start: 20141111, end: 20141116
  20. MOTILITONE [Concomitant]
     Active Substance: HERBALS
     Dosage: 30 MG, TID
     Route: 048
     Dates: start: 20141118, end: 20141118
  21. CHLORPHENIRAMINE MALEATE. [Concomitant]
     Active Substance: CHLORPHENIRAMINE MALEATE
     Dosage: 4 MG, QD
     Route: 042
     Dates: start: 20141119, end: 20141120
  22. ACETAMINOPHEN (+) CODEINE PHOSPHATE (+) IBUPROFEN [Concomitant]
     Dosage: TID (TACOPEN) 400/20/500 MG, TID
     Route: 048
     Dates: start: 20141027, end: 20141109
  23. MOTILITONE [Concomitant]
     Active Substance: HERBALS
     Indication: PROPHYLAXIS
     Dosage: 30 MG, BID
     Route: 048
     Dates: start: 20141112, end: 20141117
  24. FLUOROURACIL. [Concomitant]
     Active Substance: FLUOROURACIL
     Dosage: 250 MG, QD; 4DAYS TOTAL DOSE: 1000 MG; STRENGTH: 1000MG/20ML
     Route: 042
     Dates: start: 20141111, end: 20141114
  25. ULTRACET [Concomitant]
     Active Substance: ACETAMINOPHEN\TRAMADOL HYDROCHLORIDE
     Indication: PAIN MANAGEMENT
     Dosage: 1 TABLET, BID
     Route: 048
     Dates: start: 20141018, end: 20141111
  26. ULTRACET [Concomitant]
     Active Substance: ACETAMINOPHEN\TRAMADOL HYDROCHLORIDE
     Dosage: 1300/150 MG, TID
     Route: 048
     Dates: start: 20141118, end: 20141118
  27. ACETAMINOPHEN (+) CODEINE PHOSPHATE (+) IBUPROFEN [Concomitant]
     Dosage: TID (TACOPEN), 400/20/500 MG, TID
     Route: 048
     Dates: start: 20141124
  28. MOTILITONE [Concomitant]
     Active Substance: HERBALS
     Dosage: 30 MG, ONCE
     Route: 048
     Dates: start: 20141119, end: 20141119
  29. METOCLOPRAMIDE HYDROCHLORIDE. [Concomitant]
     Active Substance: METOCLOPRAMIDE HYDROCHLORIDE
     Dosage: 10 MG, TID
     Route: 042
     Dates: start: 20141114, end: 20141114

REACTIONS (4)
  - Enterocolitis [Recovered/Resolved]
  - Weight increased [Recovered/Resolved]
  - Hypomagnesaemia [Not Recovered/Not Resolved]
  - Nausea [Recovered/Resolved]

NARRATIVE: CASE EVENT DATE: 20141112
